FAERS Safety Report 10601367 (Version 1)
Quarter: 2014Q4

REPORT INFORMATION
  Report Type: Spontaneous
  Country: US (occurrence: None)
  Receive Date: 20141121
  Receipt Date: 20141121
  Transmission Date: 20150529
  Serious: Yes (Hospitalization)
  Sender: FDA-Public Use
  Company Number: None

PATIENT
  Age: 52 Year
  Sex: Male
  Weight: 78.3 kg

DRUGS (3)
  1. AMIODARONE [Suspect]
     Active Substance: AMIODARONE
     Indication: VENTRICULAR TACHYCARDIA
     Route: 048
     Dates: start: 201404
  2. SIMVASTATIN. [Suspect]
     Active Substance: SIMVASTATIN
     Indication: CARDIOMYOPATHY
     Dosage: 20 MG QHS PO
     Route: 048
     Dates: start: 2008
  3. SIMVASTATIN. [Suspect]
     Active Substance: SIMVASTATIN
     Indication: HYPERLIPIDAEMIA
     Dosage: 20 MG QHS PO
     Route: 048
     Dates: start: 2008

REACTIONS (5)
  - Abdominal pain upper [None]
  - Dyspnoea [None]
  - Rhabdomyolysis [None]
  - Acute kidney injury [None]
  - International normalised ratio increased [None]

NARRATIVE: CASE EVENT DATE: 20141104
